FAERS Safety Report 24526639 (Version 1)
Quarter: 2024Q4

REPORT INFORMATION
  Report Type: Spontaneous
  Country: US (occurrence: US)
  Receive Date: 20241021
  Receipt Date: 20241021
  Transmission Date: 20250115
  Serious: No
  Sender: JOHNSON AND JOHNSON
  Company Number: US-JNJFOC-20241016470

PATIENT
  Sex: Male

DRUGS (1)
  1. ERLEADA [Suspect]
     Active Substance: APALUTAMIDE
     Indication: Product used for unknown indication
     Route: 048

REACTIONS (6)
  - Musculoskeletal pain [Unknown]
  - Pain [Unknown]
  - Inflammation [Unknown]
  - Spondylitis [Unknown]
  - Hot flush [Unknown]
  - Groin pain [Unknown]
